FAERS Safety Report 11797062 (Version 2)
Quarter: 2016Q1

REPORT INFORMATION
  Report Type: Spontaneous
  Country: PE (occurrence: PE)
  Receive Date: 20151203
  Receipt Date: 20160219
  Transmission Date: 20160525
  Serious: Yes (Other)
  Sender: FDA-Public Use
  Company Number: PE-PFIZER INC-2015406685

PATIENT
  Age: 63 Year
  Sex: Female

DRUGS (4)
  1. GABAPENTIN. [Suspect]
     Active Substance: GABAPENTIN
     Indication: SKIN BURNING SENSATION
     Dosage: UNK
  2. LYRICA [Suspect]
     Active Substance: PREGABALIN
     Indication: PRURITUS
  3. GABAPENTIN. [Suspect]
     Active Substance: GABAPENTIN
     Indication: PRURITUS
  4. LYRICA [Suspect]
     Active Substance: PREGABALIN
     Indication: SKIN BURNING SENSATION
     Dosage: 150 MG, DAILY

REACTIONS (3)
  - Underweight [Not Recovered/Not Resolved]
  - Skin ulcer [Recovered/Resolved]
  - Drug ineffective for unapproved indication [Not Recovered/Not Resolved]

NARRATIVE: CASE EVENT DATE: 201509
